FAERS Safety Report 7221631-X (Version None)
Quarter: 2011Q1

REPORT INFORMATION
  Report Type: 
  Country: None (occurrence: None)
  Receive Date: 20110112
  Receipt Date: 20110108
  Transmission Date: 20110831
  Serious: Yes (Hospitalization)
  Sender: FDA-Public Use
  Company Number: RU-ROCHE-725077

PATIENT
  Sex: Male
  Weight: 130 kg

DRUGS (10)
  1. ACTEMRA [Suspect]
     Route: 042
     Dates: start: 20100319
  2. ACTEMRA [Suspect]
     Dosage: DOSE DISCONTINUED SINCE: 19 JUNE 2010.
     Route: 042
     Dates: start: 20100517, end: 20100619
  3. INDAPAMIDE [Concomitant]
  4. ACTEMRA [Suspect]
     Route: 042
     Dates: start: 20100416
  5. DMARD [Concomitant]
  6. METYPRED [Concomitant]
  7. ACTEMRA [Suspect]
     Indication: RHEUMATOID ARTHRITIS
     Dosage: TOTAL MONTHLY DOSE: 560 MG.
     Route: 042
     Dates: start: 20100118
  8. ACTEMRA [Suspect]
     Route: 042
     Dates: start: 20100218
  9. BERLIPRIL [Concomitant]
  10. ASPIRIN [Concomitant]

REACTIONS (1)
  - MYOCARDIAL INFARCTION [None]
